FAERS Safety Report 8599151-X (Version None)
Quarter: 2012Q3

REPORT INFORMATION
  Report Type: 
  Country: None (occurrence: None)
  Receive Date: 20120816
  Receipt Date: 20120807
  Transmission Date: 20120928
  Serious: Yes (Hospitalization)
  Sender: FDA-Public Use
  Company Number: US-ABBOTT-12P-163-0963394-00

PATIENT
  Sex: Male
  Weight: 79.45 kg

DRUGS (6)
  1. HUMIRA [Suspect]
     Route: 058
     Dates: start: 20120805, end: 20120805
  2. PENTASA [Concomitant]
     Indication: PRODUCT USED FOR UNKNOWN INDICATION
  3. IMURAN [Concomitant]
     Indication: PRODUCT USED FOR UNKNOWN INDICATION
     Dosage: UNKNOWN DAILY DOSE
  4. HUMIRA [Suspect]
     Indication: CROHN'S DISEASE
     Route: 058
     Dates: start: 20120722, end: 20120722
  5. HYDROCODONE [Concomitant]
     Indication: PRODUCT USED FOR UNKNOWN INDICATION
  6. HUMIRA [Suspect]

REACTIONS (7)
  - COLITIS [None]
  - MALAISE [None]
  - VOMITING [None]
  - ABSCESS INTESTINAL [None]
  - DEVICE MALFUNCTION [None]
  - ABDOMINAL PAIN [None]
  - NAUSEA [None]
